FAERS Safety Report 7938242-0 (Version None)
Quarter: 2011Q4

REPORT INFORMATION
  Report Type: 
  Country: None (occurrence: None)
  Receive Date: 20111123
  Receipt Date: 20111121
  Transmission Date: 20120403
  Serious: Yes (Other)
  Sender: FDA-Public Use
  Company Number: CHPA2011US016555

PATIENT
  Age: 93 Year
  Sex: Female

DRUGS (2)
  1. DRUG THERAPY NOS [Suspect]
     Dosage: UNK, BID
  2. VOLTAREN [Suspect]
     Indication: PAIN
     Dosage: UNK, TID
     Route: 061

REACTIONS (5)
  - DRUG ADMINISTERED AT INAPPROPRIATE SITE [None]
  - PAIN IN EXTREMITY [None]
  - POOR PERIPHERAL CIRCULATION [None]
  - DRUG INEFFECTIVE FOR UNAPPROVED INDICATION [None]
  - GASTROINTESTINAL MOTILITY DISORDER [None]
